FAERS Safety Report 5976007-X (Version None)
Quarter: 2008Q4

REPORT INFORMATION
  Report Type: 
  Country: None (occurrence: None)
  Receive Date: 20081202
  Receipt Date: 20081125
  Transmission Date: 20090506
  Serious: Yes (Other)
  Sender: FDA-Public Use
  Company Number: PHEH2008US10605

PATIENT
  Sex: Female

DRUGS (2)
  1. RECLAST [Suspect]
     Indication: OSTEOPOROSIS
     Dosage: 5 MG, UNK
     Dates: start: 20081113
  2. COUMADIN [Interacting]
     Dosage: 5 MG, QD
     Dates: end: 20081101

REACTIONS (1)
  - INTERNATIONAL NORMALISED RATIO INCREASED [None]
